FAERS Safety Report 6106761-8 (Version None)
Quarter: 2009Q1

REPORT INFORMATION
  Report Type: 
  Country: None (occurrence: None)
  Receive Date: 20090307
  Receipt Date: 20090224
  Transmission Date: 20090719
  Serious: Yes (Other)
  Sender: FDA-Public Use
  Company Number: US-JNJCH-2009005545

PATIENT

DRUGS (1)
  1. ASPIRIN [Suspect]
     Indication: ALLERGENIC DESENSITISATION PROCEDURE
     Dosage: TEXT:30MG-650 MG OVER THE 2-3-DAY PROCEDURE
     Route: 048

REACTIONS (2)
  - BRONCHIAL DISORDER [None]
  - FORCED EXPIRATORY VOLUME DECREASED [None]
